FAERS Safety Report 7284472-3 (Version None)
Quarter: 2011Q1

REPORT INFORMATION
  Report Type: 
  Country: None (occurrence: None)
  Receive Date: 20110209
  Receipt Date: 20110202
  Transmission Date: 20110831
  Serious: Yes (Hospitalization, Other)
  Sender: FDA-Public Use
  Company Number: US-US-EMD SERONO, INC.-7030926

PATIENT
  Sex: Female
  Weight: 96 kg

DRUGS (2)
  1. REBIF [Suspect]
     Route: 058
  2. REBIF [Suspect]
     Indication: MULTIPLE SCLEROSIS
     Route: 058
     Dates: start: 20100607

REACTIONS (4)
  - MUSCULAR WEAKNESS [None]
  - PYREXIA [None]
  - VIRAL INFECTION [None]
  - OPTIC NEURITIS [None]
